FAERS Safety Report 11149390 (Version 1)
Quarter: 2015Q2

REPORT INFORMATION
  Report Type: Spontaneous
  Country: BR (occurrence: BR)
  Receive Date: 20150529
  Receipt Date: 20150529
  Transmission Date: 20150821
  Serious: Yes (Hospitalization, Other)
  Sender: FDA-Public Use
  Company Number: BR-SA-2015SA072825

PATIENT
  Sex: Male
  Weight: 2.87 kg

DRUGS (4)
  1. SYNTHROID [Concomitant]
     Active Substance: LEVOTHYROXINE SODIUM
     Indication: MATERNAL EXPOSURE TIMING UNSPECIFIED
     Dosage: STRENGTH: 175 MCG
     Route: 064
  2. ALDOMET [Concomitant]
     Active Substance: METHYLDOPA
     Indication: MATERNAL EXPOSURE TIMING UNSPECIFIED
     Dosage: STRENGTH: 500MG
     Route: 064
  3. MINERALS NOS/FOLIC ACID/VITAMINS NOS/IRON [Concomitant]
     Indication: MATERNAL EXPOSURE TIMING UNSPECIFIED
     Route: 064
  4. LANTUS [Suspect]
     Active Substance: INSULIN GLARGINE
     Indication: MATERNAL EXPOSURE TIMING UNSPECIFIED
     Route: 064
     Dates: start: 201501, end: 20150205

REACTIONS (3)
  - Hospitalisation [Unknown]
  - Foetal exposure during pregnancy [Unknown]
  - Trisomy 21 [Unknown]
